FAERS Safety Report 17123841 (Version 2)
Quarter: 2019Q4

REPORT INFORMATION
  Report Type: Spontaneous
  Country: DE (occurrence: DE)
  Receive Date: 20191206
  Receipt Date: 20191212
  Transmission Date: 20200122
  Serious: Yes (Other)
  Sender: FDA-Public Use
  Company Number: DE-ASTELLAS-2019US048186

PATIENT
  Age: 83 Year
  Sex: Female

DRUGS (10)
  1. XARELTO [Concomitant]
     Active Substance: RIVAROXABAN
     Indication: ANTICOAGULANT THERAPY
     Dosage: UNK UNK, UNKNOWN FREQ.
     Route: 065
  2. BETMIGA [Suspect]
     Active Substance: MIRABEGRON
     Dosage: 0.5 DF (DIVIDED TABLET), UNKNOWN FREQ.
     Route: 065
  3. TORASEMID [Concomitant]
     Active Substance: TORSEMIDE
     Indication: PERICARDIAL DRAINAGE
     Dosage: 2.5 MG, ONCE DAILY (IN MORNING)
     Route: 065
  4. BETMIGA [Suspect]
     Active Substance: MIRABEGRON
     Indication: PRODUCT USED FOR UNKNOWN INDICATION
     Route: 065
  5. PANTOPRAZOL [Concomitant]
     Active Substance: PANTOPRAZOLE SODIUM
     Indication: PRODUCT USED FOR UNKNOWN INDICATION
     Dosage: 40 UNIT NOT PROVIDED, UNKNOWN FREQ.
     Route: 065
  6. BETMIGA [Suspect]
     Active Substance: MIRABEGRON
     Route: 065
  7. RAMIPRIL. [Concomitant]
     Active Substance: RAMIPRIL
     Indication: BLOOD PRESSURE ABNORMAL
     Dosage: 0.5 DF, TWICE DAILY (IN MORNING AND EVENING)
     Route: 065
  8. ASPIRIN. [Concomitant]
     Active Substance: ASPIRIN
     Indication: PRODUCT USED FOR UNKNOWN INDICATION
     Dosage: 100 UNIT NOT PROVIDED, UNKNOWN FREQ.
     Route: 065
  9. BISOPROLOL [Concomitant]
     Active Substance: BISOPROLOL
     Indication: PRODUCT USED FOR UNKNOWN INDICATION
     Dosage: 0.5 DF (5 UNKNOWN UNIT), TWICE DAILY (IN MORNING AND EVENING)
     Route: 065
  10. SIMVASTATIN. [Concomitant]
     Active Substance: SIMVASTATIN
     Indication: PRODUCT USED FOR UNKNOWN INDICATION
     Route: 065

REACTIONS (15)
  - Joint warmth [Unknown]
  - Peripheral coldness [Unknown]
  - Nasopharyngitis [Unknown]
  - Headache [Unknown]
  - Palpitations [Unknown]
  - Acne [Unknown]
  - Salivary hypersecretion [Unknown]
  - Wrong technique in product usage process [Unknown]
  - Joint swelling [Unknown]
  - Gait inability [Unknown]
  - Arthralgia [Unknown]
  - Arthritis [Unknown]
  - Lacrimation increased [Unknown]
  - Paraesthesia oral [Unknown]
  - Diarrhoea [Unknown]
